FAERS Safety Report 20327429 (Version 1)
Quarter: 2022Q1

REPORT INFORMATION
  Report Type: Spontaneous
  Country: US (occurrence: None)
  Receive Date: 20220111
  Receipt Date: 20220111
  Transmission Date: 20220424
  Serious: Yes (Other)
  Sender: FDA-Public Use
  Company Number: None

PATIENT
  Age: 35 Year
  Sex: Female
  Weight: 56.7 kg

DRUGS (13)
  1. CASIRIVIMAB\IMDEVIMAB [Suspect]
     Active Substance: CASIRIVIMAB\IMDEVIMAB
     Indication: COVID-19
     Dosage: OTHER FREQUENCY : ONCE;?
     Route: 058
     Dates: start: 20220106, end: 20220106
  2. albuterol 2.5/3mL neb [Concomitant]
  3. Vitamin B-12 1,000mcg/mL [Concomitant]
  4. Cymbalta 30 mg capsule [Concomitant]
  5. estradiol 0.1mg/24hr [Concomitant]
  6. Florinef 0.1mg [Concomitant]
  7. gapapentin 300mg [Concomitant]
  8. HYDROCORTISONE [Concomitant]
     Active Substance: HYDROCORTISONE
  9. LINZESS [Concomitant]
     Active Substance: LINACLOTIDE
  10. MIRTAZAPINE [Concomitant]
     Active Substance: MIRTAZAPINE
  11. SINGULAIR [Concomitant]
     Active Substance: MONTELUKAST SODIUM
  12. promethazine 12.5mg [Concomitant]
  13. ondansetron OCT 8mg [Concomitant]

REACTIONS (8)
  - Nausea [None]
  - Back pain [None]
  - Radiation injury [None]
  - Blood pressure increased [None]
  - Hypersensitivity [None]
  - Abdominal pain [None]
  - Cough [None]
  - Drug ineffective [None]

NARRATIVE: CASE EVENT DATE: 20220106
